FAERS Safety Report 14530127 (Version 1)
Quarter: 2018Q1

REPORT INFORMATION
  Report Type: Spontaneous
  Country: US (occurrence: US)
  Receive Date: 20180214
  Receipt Date: 20180214
  Transmission Date: 20180509
  Serious: Yes (Hospitalization, Other)
  Sender: FDA-Public Use
  Company Number: US-WEST-WARD PHARMACEUTICALS CORP.-US-H14001-18-00878

PATIENT
  Age: 42 Year
  Sex: Male

DRUGS (14)
  1. HYDROMORPHONE [Suspect]
     Active Substance: HYDROMORPHONE
     Indication: CANCER PAIN
     Dosage: REDUCED DOSE ()
     Route: 042
  2. LORAZEPAM. [Concomitant]
     Active Substance: LORAZEPAM
     Indication: PROPHYLAXIS
     Route: 048
  3. DEXAMETHASONE. [Concomitant]
     Active Substance: DEXAMETHASONE
     Indication: ADJUVANT THERAPY
     Route: 048
  4. DEXAMETHASONE. [Concomitant]
     Active Substance: DEXAMETHASONE
     Route: 048
  5. MORPHINE [Suspect]
     Active Substance: MORPHINE
     Indication: CANCER PAIN
     Route: 037
  6. ALPRAZOLAM. [Concomitant]
     Active Substance: ALPRAZOLAM
     Indication: ANXIETY
     Dosage: 4 MG EVERY 4 HOURS AS NEEDED
     Route: 065
  7. SERTRALINE [Concomitant]
     Active Substance: SERTRALINE HYDROCHLORIDE
     Indication: DEPRESSION
     Route: 065
  8. HYDROMORPHONE [Suspect]
     Active Substance: HYDROMORPHONE
     Indication: CANCER PAIN
     Dosage: 40MG/H UP TO 60MG/H
     Route: 042
  9. METHADONE [Suspect]
     Active Substance: METHADONE HYDROCHLORIDE
     Indication: CANCER PAIN
     Route: 048
  10. METHADONE [Suspect]
     Active Substance: METHADONE HYDROCHLORIDE
     Indication: CANCER PAIN
     Route: 048
  11. HYDROMORPHONE [Suspect]
     Active Substance: HYDROMORPHONE
     Indication: CANCER PAIN
     Route: 042
  12. TOPICAL SPRAY [Concomitant]
     Indication: ADJUVANT THERAPY
     Route: 061
  13. DIAZEPAM. [Concomitant]
     Active Substance: DIAZEPAM
     Indication: PROPHYLAXIS
     Route: 048
  14. DEXAMETHASONE. [Concomitant]
     Active Substance: DEXAMETHASONE
     Route: 048

REACTIONS (1)
  - Neurotoxicity [Recovering/Resolving]
